FAERS Safety Report 8206800-4 (Version None)
Quarter: 2012Q1

REPORT INFORMATION
  Report Type: 
  Country: None (occurrence: None)
  Receive Date: 20120312
  Receipt Date: 20120222
  Transmission Date: 20120608
  Serious: Yes (Hospitalization)
  Sender: FDA-Public Use
  Company Number: 2012PROUSA00931

PATIENT
  Age: 79 Year
  Sex: Male
  Weight: 58.9 kg

DRUGS (5)
  1. PROVENGE [Suspect]
     Dosage: 250 ML, SINGLE, INTRAVENOUS
     Route: 042
     Dates: start: 20111223, end: 20111223
  2. COLACE (DOCUSATE SODIUM) [Concomitant]
  3. PROVENGE [Suspect]
     Indication: PROSTATE CANCER METASTATIC
     Dosage: 250 ML, SINGLE, INTRAVENOUS
     Route: 042
     Dates: start: 20111209, end: 20111209
  4. PHENAZOPYRIDINE (PHENAZOPYRIDINE) [Concomitant]
  5. TYLENOL /00020001/ (PARACETAMOL) [Concomitant]

REACTIONS (3)
  - HEPATIC LESION [None]
  - CHEST PAIN [None]
  - PRESYNCOPE [None]
